FAERS Safety Report 14901144 (Version 2)
Quarter: 2019Q3

REPORT INFORMATION
  Report Type: Spontaneous
  Country: FR (occurrence: FR)
  Receive Date: 20180516
  Receipt Date: 20190711
  Transmission Date: 20191004
  Serious: Yes (Other)
  Sender: FDA-Public Use
  Company Number: FR-AUROBINDO-AUR-APL-2018-025621

PATIENT

DRUGS (4)
  1. QUETIAPINE. [Suspect]
     Active Substance: QUETIAPINE
     Indication: MAJOR DEPRESSION
     Dosage: 300 MILLIGRAM, ONCE A DAY (MAJORATION DE LA DOSE LE 27/03)
     Route: 048
     Dates: start: 20180322, end: 20180422
  2. TERALITHE [Suspect]
     Active Substance: LITHIUM CARBONATE
     Indication: MAJOR DEPRESSION
     Dosage: NON RENSEIGN?E ()
     Route: 048
     Dates: start: 20180323, end: 20180422
  3. TEMESTA (LORAZEPAM) [Suspect]
     Active Substance: LORAZEPAM
     Indication: MAJOR DEPRESSION
     Dosage: NON RENSEIGN?E
     Route: 048
     Dates: start: 20180326, end: 20180420
  4. CLOMIPRAMINE HCL [Suspect]
     Active Substance: CLOMIPRAMINE
     Indication: MAJOR DEPRESSION
     Dosage: MAJORATION DE LA POSOLOGIE AU 18/04 ()
     Route: 048
     Dates: start: 20180412, end: 20180422

REACTIONS (2)
  - Rash [Recovered/Resolved]
  - Drug reaction with eosinophilia and systemic symptoms [Recovered/Resolved]

NARRATIVE: CASE EVENT DATE: 20180419
